FAERS Safety Report 9841911 (Version 1)
Quarter: 2014Q1

REPORT INFORMATION
  Report Type: Spontaneous
  Country: CH (occurrence: CH)
  Receive Date: 20140124
  Receipt Date: 20140124
  Transmission Date: 20141002
  Serious: Yes (Hospitalization)
  Sender: FDA-Public Use
  Company Number: CH-PFIZER INC-2014020256

PATIENT
  Age: 69 Year
  Sex: Female

DRUGS (11)
  1. PANTOZOL [Suspect]
     Indication: PROPHYLAXIS
     Dosage: 40 MG, 1X/DAY
     Route: 048
     Dates: end: 20131227
  2. BEROCCA [Concomitant]
     Dosage: UNK
  3. CALCIUM SANDOZ [Concomitant]
     Dosage: UNK
  4. EXFORGE [Concomitant]
     Dosage: UNK
  5. BETAHISTIN MEPHA [Concomitant]
     Dosage: UNK
  6. IMODIUM [Concomitant]
     Dosage: UNK
  7. KCL-RETARD ZYMA [Concomitant]
     Dosage: UNK
  8. MAGNESIOCARD [Concomitant]
     Dosage: UNK
  9. BELOC [Concomitant]
     Dosage: UNK
  10. QUANTALAN [Concomitant]
     Dosage: UNK
  11. HUMIRA [Concomitant]
     Dosage: UNK

REACTIONS (3)
  - Hypoparathyroidism [Recovering/Resolving]
  - Blood calcium decreased [Recovering/Resolving]
  - Hypomagnesaemia [Recovering/Resolving]
